FAERS Safety Report 6120547-X (Version None)
Quarter: 2009Q1

REPORT INFORMATION
  Report Type: 
  Country: None (occurrence: None)
  Receive Date: 20090312
  Receipt Date: 20090312
  Transmission Date: 20090719
  Serious: Yes (Hospitalization)
  Sender: FDA-Public Use
  Company Number: None

PATIENT
  Sex: Male
  Weight: 76 kg

DRUGS (2)
  1. CISPLATIN [Suspect]
     Dosage: 188 MG
     Dates: end: 20090225
  2. TAXOL [Suspect]
     Dosage: 380 MG
     Dates: end: 20090225

REACTIONS (2)
  - RASH ERYTHEMATOUS [None]
  - RASH PAPULAR [None]
